FAERS Safety Report 23615976 (Version 2)
Quarter: 2024Q2

REPORT INFORMATION
  Report Type: Spontaneous
  Country: US (occurrence: US)
  Receive Date: 20240311
  Receipt Date: 20240405
  Transmission Date: 20240715
  Serious: No
  Sender: FDA-Public Use
  Company Number: US-VIIV HEALTHCARE LIMITED-US2024022737

PATIENT
  Age: 36 Year
  Sex: Female
  Weight: 90.7 kg

DRUGS (11)
  1. CABENUVA [Suspect]
     Active Substance: CABOTEGRAVIR\RILPIVIRINE
     Indication: HIV infection
     Dosage: UNK UNK, MO (600 MG/3ML; 900MG/3ML, DISPENSE 6ML, REFILL 3)
     Route: 030
     Dates: start: 20230518
  2. CABENUVA [Suspect]
     Active Substance: CABOTEGRAVIR\RILPIVIRINE
  3. CABENUVA [Suspect]
     Active Substance: CABOTEGRAVIR\RILPIVIRINE
  4. PROVENTIL HFA [Suspect]
     Active Substance: ALBUTEROL SULFATE
     Indication: Wheezing
     Dosage: 2 PUFF(S), 6D, AS NEEDED, (90 MCG/ACTUATION, HFA AEROSOL, DISPENSE 1 EACH, REFILL 1)
     Route: 055
  5. BIKTARVY [Suspect]
     Active Substance: BICTEGRAVIR SODIUM\EMTRICITABINE\TENOFOVIR ALAFENAMIDE FUMARATE
     Indication: HIV infection
     Dosage: UNK UNK, QD (50-200-25 MG)
     Route: 048
  6. PRISTIQ EXTENDED-RELEASE [Suspect]
     Active Substance: DESVENLAFAXINE SUCCINATE
     Indication: Bipolar I disorder
     Dosage: 50 MG, QD (EXTENDED RELEASE 24 HR, IN THE MORNING)
     Route: 048
     Dates: start: 20240111
  7. FLONASE [Suspect]
     Active Substance: FLUTICASONE PROPIONATE
     Indication: Product used for unknown indication
     Dosage: 2 PUFF(S), QD (50 MCG/ACTUATION, DISPENE 3 EACH, REFILL 3)
     Route: 045
  8. DEXTROMETHORPHAN HYDROBROMIDE\PROMETHAZINE HYDROCHLORIDE [Suspect]
     Active Substance: DEXTROMETHORPHAN HYDROBROMIDE\PROMETHAZINE HYDROCHLORIDE
     Indication: Product used for unknown indication
     Dosage: 1 DF, QID (6.25-15 MG/ 5 ML)
     Route: 048
  9. SEROQUEL [Suspect]
     Active Substance: QUETIAPINE FUMARATE
     Indication: Product used for unknown indication
     Dosage: 50 MG, QD, (NIGHTLY, DISPENSE 90 TABLET, REFILL 2)
     Route: 048
  10. SEROQUEL [Suspect]
     Active Substance: QUETIAPINE FUMARATE
     Dosage: 200 MG, QD
     Route: 048
     Dates: start: 20240111
  11. TAMIFLU [Concomitant]
     Active Substance: OSELTAMIVIR PHOSPHATE
     Indication: Product used for unknown indication
     Dosage: 1 DF, BID (DISPENSE 10 CAPSULE)
     Route: 048

REACTIONS (9)
  - Irritability [Unknown]
  - Disturbance in attention [Unknown]
  - Nervousness [Unknown]
  - Obesity [Unknown]
  - Pruritus [Unknown]
  - Dyspnoea [Unknown]
  - Throat tightness [Unknown]
  - Ill-defined disorder [Unknown]
  - Treatment noncompliance [Unknown]

NARRATIVE: CASE EVENT DATE: 20240402
